FAERS Safety Report 10752311 (Version 1)
Quarter: 2015Q1

REPORT INFORMATION
  Report Type: Spontaneous
  Country: CN (occurrence: CN)
  Receive Date: 20150130
  Receipt Date: 20150130
  Transmission Date: 20150721
  Serious: Yes (Hospitalization)
  Sender: FDA-Public Use
  Company Number: CN-BAXTER-2015BAX004051

PATIENT
  Sex: Female

DRUGS (2)
  1. 0.9% SODIUM CHLORIDE INJECTION [Suspect]
     Active Substance: SODIUM CHLORIDE
     Indication: PRODUCT USED FOR UNKNOWN INDICATION
     Route: 041
     Dates: end: 20150122
  2. XIYANPING ZHUSHEYE [Suspect]
     Active Substance: HERBALS
     Indication: PRODUCT USED FOR UNKNOWN INDICATION
     Route: 041
     Dates: end: 20150122

REACTIONS (2)
  - Product contamination physical [Unknown]
  - No adverse event [Recovered/Resolved]

NARRATIVE: CASE EVENT DATE: 20150122
